FAERS Safety Report 22089787 (Version 1)
Quarter: 2023Q1

REPORT INFORMATION
  Report Type: Spontaneous
  Country: FR (occurrence: FR)
  Receive Date: 20230313
  Receipt Date: 20230313
  Transmission Date: 20230417
  Serious: Yes (Hospitalization)
  Sender: FDA-Public Use
  Company Number: None

PATIENT

DRUGS (2)
  1. SUBUTEX [Interacting]
     Active Substance: BUPRENORPHINE HYDROCHLORIDE
     Indication: Opioid sparing treatment
     Dosage: 2 MILLIGRAM, QD
     Route: 060
  2. NALMEFENE HYDROCHLORIDE DIHYDRATE [Interacting]
     Active Substance: NALMEFENE HYDROCHLORIDE DIHYDRATE
     Indication: Prophylaxis against alcoholic withdrawal syndrome
     Dosage: 18 MILLIGRAM, QD
     Route: 048
     Dates: start: 20230210, end: 20230210

REACTIONS (2)
  - Dyskinesia [Recovered/Resolved]
  - Drug withdrawal syndrome [Recovered/Resolved]

NARRATIVE: CASE EVENT DATE: 20230210
